FAERS Safety Report 18530724 (Version 24)
Quarter: 2022Q3

REPORT INFORMATION
  Report Type: Report from Study
  Country: CO (occurrence: CO)
  Receive Date: 20201121
  Receipt Date: 20220906
  Transmission Date: 20221026
  Serious: Yes (Hospitalization, Other)
  Sender: FDA-Public Use
  Company Number: CO-SHIRE-CO202004654

PATIENT
  Age: 37 Year
  Sex: Female
  Weight: 56 kg

DRUGS (10)
  1. HUMAN IMMUNOGLOBULIN G\HYALURONIDASE RECOMBINANT HUMAN [Suspect]
     Active Substance: HUMAN IMMUNOGLOBULIN G\HYALURONIDASE RECOMBINANT HUMAN
     Indication: Primary immunodeficiency syndrome
     Dosage: 30 GRAM, MONTHLY
     Route: 058
     Dates: start: 20191113
  2. HUMAN IMMUNOGLOBULIN G\HYALURONIDASE RECOMBINANT HUMAN [Suspect]
     Active Substance: HUMAN IMMUNOGLOBULIN G\HYALURONIDASE RECOMBINANT HUMAN
     Dosage: 5 GRAM
     Route: 065
  3. HUMAN IMMUNOGLOBULIN G\HYALURONIDASE RECOMBINANT HUMAN [Suspect]
     Active Substance: HUMAN IMMUNOGLOBULIN G\HYALURONIDASE RECOMBINANT HUMAN
     Dosage: 10 GRAM
     Route: 065
  4. HUMAN IMMUNOGLOBULIN G\HYALURONIDASE RECOMBINANT HUMAN [Suspect]
     Active Substance: HUMAN IMMUNOGLOBULIN G\HYALURONIDASE RECOMBINANT HUMAN
     Dosage: 25 GRAM
     Route: 058
     Dates: start: 20201009
  5. ESOMEPRAZOLE [Concomitant]
     Active Substance: ESOMEPRAZOLE
     Indication: Product used for unknown indication
     Dosage: UNK
     Route: 048
  6. Z-BEC [VITAMINS NOS;ZINC SULFATE] [Concomitant]
     Indication: Product used for unknown indication
     Dosage: UNK
     Route: 065
  7. CHOLECALCIFEROL [Concomitant]
     Active Substance: CHOLECALCIFEROL
     Indication: Product used for unknown indication
     Dosage: UNK
     Route: 065
  8. FOSFOMYCIN [Concomitant]
     Active Substance: FOSFOMYCIN
     Indication: Product used for unknown indication
     Dosage: UNK
     Route: 065
  9. AMITRIPTYLINE HYDROCHLORIDE [Concomitant]
     Active Substance: AMITRIPTYLINE HYDROCHLORIDE
     Indication: Product used for unknown indication
     Dosage: UNK
     Route: 048
  10. TRIMETHOPRIM SULFATE [Concomitant]
     Active Substance: TRIMETHOPRIM SULFATE
     Route: 048

REACTIONS (42)
  - Herpes virus infection [Recovering/Resolving]
  - Gastrointestinal bacterial infection [Recovered/Resolved]
  - Medical device site infection [Recovered/Resolved]
  - Device dislocation [Recovering/Resolving]
  - Pterygium [Recovering/Resolving]
  - Suspected COVID-19 [Recovered/Resolved]
  - Urinary tract infection [Not Recovered/Not Resolved]
  - Cystitis [Recovering/Resolving]
  - Herpes pharyngitis [Recovering/Resolving]
  - Genital herpes [Recovering/Resolving]
  - Weight increased [Recovering/Resolving]
  - Dysuria [Recovering/Resolving]
  - Unevaluable event [Recovering/Resolving]
  - Blister [Recovering/Resolving]
  - General physical health deterioration [Not Recovered/Not Resolved]
  - Vessel puncture site pain [Recovered/Resolved]
  - Oropharyngeal pain [Not Recovered/Not Resolved]
  - Pain [Recovered/Resolved]
  - Dental caries [Not Recovered/Not Resolved]
  - Allergic pharyngitis [Recovering/Resolving]
  - Infusion related reaction [Recovered/Resolved]
  - Feeling abnormal [Recovered/Resolved]
  - Ageusia [Recovered/Resolved]
  - Anosmia [Recovered/Resolved]
  - Nasal congestion [Recovered/Resolved]
  - Discomfort [Not Recovered/Not Resolved]
  - Puncture site inflammation [Recovered/Resolved]
  - Discouragement [Recovering/Resolving]
  - Infusion site warmth [Recovered/Resolved]
  - Oedema genital [Recovered/Resolved]
  - Back pain [Recovering/Resolving]
  - Malaise [Not Recovered/Not Resolved]
  - Chills [Recovering/Resolving]
  - Headache [Recovered/Resolved]
  - Pyrexia [Recovered/Resolved]
  - Fatigue [Not Recovered/Not Resolved]
  - Eye pain [Recovering/Resolving]
  - Spinal pain [Recovering/Resolving]
  - Wrong schedule [Unknown]
  - Medication error [Unknown]
  - Product availability issue [Unknown]
  - Product dose omission issue [Unknown]

NARRATIVE: CASE EVENT DATE: 20200113
